FAERS Safety Report 9291494 (Version 2)
Quarter: 2013Q3

REPORT INFORMATION
  Report Type: Spontaneous
  Country: FR (occurrence: FR)
  Receive Date: 20130515
  Receipt Date: 20130923
  Transmission Date: 20140515
  Serious: Yes (Other)
  Sender: FDA-Public Use
  Company Number: FR-ELI_LILLY_AND_COMPANY-FR201305004052

PATIENT
  Age: 75 Year
  Sex: Male

DRUGS (2)
  1. CIALIS [Suspect]
     Indication: PROSTATIC ADENOMA
     Dosage: 5 MG, QD
     Route: 048
  2. TESTOSTERONE [Concomitant]

REACTIONS (5)
  - C-reactive protein increased [Recovered/Resolved]
  - Periarthritis [Recovered/Resolved]
  - Viral infection [Recovered/Resolved]
  - Myalgia [Recovered/Resolved]
  - Off label use [Unknown]
